FAERS Safety Report 7090703-5 (Version None)
Quarter: 2010Q4

REPORT INFORMATION
  Report Type: 
  Country: None (occurrence: None)
  Receive Date: 20101109
  Receipt Date: 20081007
  Transmission Date: 20110411
  Serious: No
  Sender: FDA-Public Use
  Company Number: US-KINGPHARMUSA00001-K200801180

PATIENT
  Sex: Male
  Weight: 86.168 kg

DRUGS (3)
  1. EPIPEN [Suspect]
     Dosage: UNK, SINGLE
     Dates: start: 20040101, end: 20040101
  2. MULTI-VITAMINS [Concomitant]
     Indication: SUPPLEMENTATION THERAPY
     Dosage: UNK, QD
     Route: 048
  3. FIBER SUPPLEMENT [Concomitant]
     Indication: SUPPLEMENTATION THERAPY
     Dosage: UNK, QD
     Route: 048

REACTIONS (6)
  - ACCIDENTAL EXPOSURE [None]
  - HEART RATE INCREASED [None]
  - INJECTION SITE ANAESTHESIA [None]
  - INJECTION SITE COLDNESS [None]
  - INJECTION SITE DISCOLOURATION [None]
  - INJECTION SITE HAEMORRHAGE [None]
